FAERS Safety Report 7112915-4 (Version None)
Quarter: 2010Q4

REPORT INFORMATION
  Report Type: 
  Country: None (occurrence: None)
  Receive Date: 20101119
  Receipt Date: 20100714
  Transmission Date: 20110411
  Serious: No
  Sender: FDA-Public Use
  Company Number: US-BRISTOL-MYERS SQUIBB COMPANY-15191992

PATIENT
  Sex: Female

DRUGS (1)
  1. AVALIDE [Suspect]
     Dosage: DOSE SPLIT TO 150 IN THE MORNING+150 IN THE EVENING

REACTIONS (3)
  - COUGH [None]
  - DIZZINESS [None]
  - HYPERHIDROSIS [None]
